FAERS Safety Report 9019854 (Version 1)
Quarter: 2013Q1

REPORT INFORMATION
  Report Type: Report from Study
  Country: CA (occurrence: CA)
  Receive Date: 20130118
  Receipt Date: 20130118
  Transmission Date: 20140127
  Serious: Yes (Other)
  Sender: FDA-Public Use
  Company Number: CA-JNJFOC-20130106311

PATIENT
  Age: 41 None
  Sex: Male
  Weight: 70.5 kg

DRUGS (3)
  1. REMICADE [Suspect]
     Indication: CROHN^S DISEASE
     Route: 042
     Dates: start: 20030924
  2. PENTASA [Concomitant]
     Route: 065
  3. DIOVAN [Concomitant]
     Route: 065

REACTIONS (2)
  - Vasectomy [Recovering/Resolving]
  - Lower respiratory tract infection [Recovering/Resolving]
